FAERS Safety Report 9848701 (Version 1)
Quarter: 2013Q4

REPORT INFORMATION
  Report Type: Spontaneous
  Country: US (occurrence: None)
  Receive Date: 20131224
  Receipt Date: 20131224
  Transmission Date: 20140711
  Serious: Yes (Life-Threatening, Other)
  Sender: FDA-Public Use
  Company Number: FK201301518

PATIENT
  Age: 50 Year
  Sex: Male

DRUGS (3)
  1. PACLITAXEL [Suspect]
     Indication: NON-SMALL CELL LUNG CANCER
     Route: 042
     Dates: start: 2000
  2. TAXOL (PACLITAXEL) (PACLITAXEL) [Suspect]
  3. CARBOPLATIN (CARBOPLATIN) [Concomitant]

REACTIONS (2)
  - Dyspnoea [None]
  - Flushing [None]
